FAERS Safety Report 5990759-4 (Version None)
Quarter: 2008Q4

REPORT INFORMATION
  Report Type: 
  Country: None (occurrence: None)
  Receive Date: 20081211
  Receipt Date: 20081210
  Transmission Date: 20090506
  Serious: Yes (Other)
  Sender: FDA-Public Use
  Company Number: US-RB-005136-08

PATIENT
  Age: 52 Year
  Sex: Female

DRUGS (3)
  1. SUBOXONE [Suspect]
     Route: 060
     Dates: start: 20080401, end: 20081008
  2. CYMBALTA [Concomitant]
     Indication: DEPRESSION
     Route: 048
  3. VYTORIN [Concomitant]
     Route: 048

REACTIONS (2)
  - LARYNGEAL CANCER [None]
  - WITHDRAWAL SYNDROME [None]
